FAERS Safety Report 8574238-6 (Version None)
Quarter: 2012Q3

REPORT INFORMATION
  Report Type: 
  Country: None (occurrence: None)
  Receive Date: 20120806
  Receipt Date: 20120730
  Transmission Date: 20120928
  Serious: Yes (Hospitalization)
  Sender: FDA-Public Use
  Company Number: FR-BAXTER-2012BAX012990

PATIENT
  Sex: Female

DRUGS (18)
  1. CYCLOPHOSPHAMIDE [Suspect]
     Route: 048
     Dates: start: 20120305
  2. CYCLOPHOSPHAMIDE [Suspect]
     Route: 048
     Dates: start: 20120402
  3. NOVORAPID [Concomitant]
     Route: 065
  4. POTASSIUM CHLORIDE [Concomitant]
     Route: 065
  5. PREDNISONE TAB [Concomitant]
     Route: 065
  6. CYCLOPHOSPHAMIDE [Suspect]
     Route: 048
     Dates: start: 20120123
  7. VALACYCLOVIR HYDROCHLORIDE [Concomitant]
     Route: 065
  8. HUMULIN N [Concomitant]
     Route: 065
  9. CYCLOPHOSPHAMIDE [Suspect]
     Route: 048
     Dates: start: 20120424
  10. CACIT D3 [Concomitant]
     Route: 065
  11. CYCLOPHOSPHAMIDE [Suspect]
     Route: 048
     Dates: start: 20120220
  12. BARACLUDE [Suspect]
     Indication: PROPHYLAXIS
     Route: 048
     Dates: start: 20120201, end: 20120620
  13. CYCLOPHOSPHAMIDE [Suspect]
     Route: 048
     Dates: start: 20120206
  14. GLUCOPHAGE [Concomitant]
     Route: 065
  15. CYCLOPHOSPHAMIDE [Suspect]
     Route: 048
     Dates: start: 20120319
  16. ATARAX [Concomitant]
     Route: 065
  17. CYCLOPHOSPHAMIDE [Suspect]
     Route: 048
     Dates: start: 20120523, end: 20120523
  18. BACTRIM [Concomitant]
     Route: 065

REACTIONS (2)
  - BLOOD CREATINE PHOSPHOKINASE INCREASED [None]
  - ARTHRALGIA [None]
